FAERS Safety Report 4914308-4 (Version None)
Quarter: 2006Q1

REPORT INFORMATION
  Report Type: 
  Country: None (occurrence: None)
  Receive Date: 20060213
  Receipt Date: 20060131
  Transmission Date: 20060701
  Serious: Yes (Death, Other)
  Sender: FDA-Public Use
  Company Number: CA-2006-002080

PATIENT
  Age: 15 Year
  Sex: Male

DRUGS (7)
  1. FLUDARA [Suspect]
     Indication: CONGENITAL DYSKERATOSIS
     Dosage: 30 MG/M2, 1X/DAY, INTRAVENOUS
     Route: 042
  2. FLUDARA [Suspect]
     Indication: PROPHYLAXIS AGAINST TRANSPLANT REJECTION
     Dosage: 30 MG/M2, 1X/DAY, INTRAVENOUS
     Route: 042
  3. CYCLOPHOSPHAMIDE [Suspect]
     Indication: CONGENITAL DYSKERATOSIS
     Dosage: 60 MG/KG, 1X/DAY, INTRAVENOUS
     Route: 042
  4. CYCLOPHOSPHAMIDE [Suspect]
     Indication: PROPHYLAXIS AGAINST TRANSPLANT REJECTION
     Dosage: 60 MG/KG, 1X/DAY, INTRAVENOUS
     Route: 042
  5. ANTITHYMOCYTE IMMUNOGLOBULIN(ANTITHYMOCYTE IMMUNOGLOBULIN) [Suspect]
     Indication: CONGENITAL DYSKERATOSIS
     Dosage: 40 MG/KG, 1X/DAY , INTRAVENOUS
     Route: 042
  6. ANTITHYMOCYTE IMMUNOGLOBULIN(ANTITHYMOCYTE IMMUNOGLOBULIN) [Suspect]
     Indication: PROPHYLAXIS AGAINST TRANSPLANT REJECTION
     Dosage: 40 MG/KG, 1X/DAY , INTRAVENOUS
     Route: 042
  7. CYCLOSPORINE [Suspect]
     Dosage: 2X/DAY, INTRAVENOUS
     Route: 042

REACTIONS (17)
  - ASCITES [None]
  - BLOOD BILIRUBIN INCREASED [None]
  - BRAIN HERNIATION [None]
  - BRAIN OEDEMA [None]
  - CEREBRAL HAEMORRHAGE [None]
  - DIARRHOEA [None]
  - DRUG INEFFECTIVE [None]
  - GASTRITIS [None]
  - GASTROINTESTINAL DISORDER [None]
  - GRAFT VERSUS HOST DISEASE IN SKIN [None]
  - OESOPHAGITIS [None]
  - SEPTIC SHOCK [None]
  - STAPHYLOCOCCAL INFECTION [None]
  - STREPTOCOCCAL INFECTION [None]
  - THERAPEUTIC AGENT TOXICITY [None]
  - THROMBOSIS [None]
  - VASCULITIS CEREBRAL [None]
